FAERS Safety Report 18915134 (Version 1)
Quarter: 2021Q1

REPORT INFORMATION
  Report Type: Spontaneous
  Country: ES (occurrence: ES)
  Receive Date: 20210219
  Receipt Date: 20210219
  Transmission Date: 20210420
  Serious: Yes (Hospitalization, Other)
  Sender: FDA-Public Use
  Company Number: ES-LEADINGPHARMA-ES-2021LEALIT00064

PATIENT
  Age: 42 Year
  Sex: Female
  Weight: 42 kg

DRUGS (2)
  1. LIDOCAINE. [Suspect]
     Active Substance: LIDOCAINE
     Indication: MEDICAL DEVICE IMPLANTATION
     Dosage: TOTAL DOSE ADMINISTERED: 300MG
     Route: 058
  2. DIAZEPAM. [Interacting]
     Active Substance: DIAZEPAM
     Indication: SEIZURE
     Route: 042

REACTIONS (10)
  - Paraesthesia oral [Unknown]
  - Pupils unequal [Recovered/Resolved]
  - Loss of consciousness [Unknown]
  - Dry mouth [Unknown]
  - Muscle rigidity [Unknown]
  - Cardiotoxicity [Unknown]
  - Incorrect dose administered [Unknown]
  - Sinus tachycardia [Unknown]
  - Seizure [Recovered/Resolved]
  - Toxicity to various agents [Unknown]
